FAERS Safety Report 8102234-1 (Version None)
Quarter: 2012Q1

REPORT INFORMATION
  Report Type: 
  Country: None (occurrence: None)
  Receive Date: 20120201
  Receipt Date: 20120122
  Transmission Date: 20120608
  Serious: Yes (Other)
  Sender: FDA-Public Use
  Company Number: US-RB-033937-12

PATIENT
  Age: 69 Year
  Sex: Male

DRUGS (1)
  1. MUCINEX D [Suspect]
     Dosage: 3 TABLETS DAILY - 1 / AM AND 2 / PM
     Route: 048

REACTIONS (1)
  - EPISTAXIS [None]
